FAERS Safety Report 7945751-7 (Version None)
Quarter: 2011Q4

REPORT INFORMATION
  Report Type: 
  Country: None (occurrence: None)
  Receive Date: 20111122
  Receipt Date: 20110613
  Transmission Date: 20120403
  Serious: Yes (Hospitalization, Other)
  Sender: FDA-Public Use
  Company Number: 2011SP053029

PATIENT
  Sex: Male

DRUGS (1)
  1. COPPERTONE (ACTIVES UNKNOWN) [Suspect]
     Indication: PRODUCT USED FOR UNKNOWN INDICATION
     Dates: start: 20110601

REACTIONS (2)
  - PANIC ATTACK [None]
  - ECONOMIC PROBLEM [None]
